FAERS Safety Report 8460004-9 (Version None)
Quarter: 2012Q2

REPORT INFORMATION
  Report Type: 
  Country: None (occurrence: None)
  Receive Date: 20120622
  Receipt Date: 20120619
  Transmission Date: 20120825
  Serious: Yes (Hospitalization)
  Sender: FDA-Public Use
  Company Number: PHHY2012US052777

PATIENT
  Age: 63 Year
  Sex: Male

DRUGS (2)
  1. DONEPEZIL HCL [Suspect]
  2. GALANTAMINE HYDROBROMIDE [Suspect]

REACTIONS (9)
  - ABNORMAL BEHAVIOUR [None]
  - POST-TRAUMATIC STRESS DISORDER [None]
  - IRRITABILITY [None]
  - CRYING [None]
  - INTERMITTENT EXPLOSIVE DISORDER [None]
  - RESPIRATORY DISTRESS [None]
  - NIGHTMARE [None]
  - AGITATION [None]
  - CONCOMITANT DISEASE AGGRAVATED [None]
